FAERS Safety Report 7753659-5 (Version None)
Quarter: 2011Q3

REPORT INFORMATION
  Report Type: 
  Country: None (occurrence: None)
  Receive Date: 20110915
  Receipt Date: 20110905
  Transmission Date: 20111222
  Serious: Yes (Hospitalization)
  Sender: FDA-Public Use
  Company Number: JP-BAYER-2011-066866

PATIENT
  Age: 50 Year
  Sex: Male
  Weight: 62.6 kg

DRUGS (5)
  1. SORAFENIB (RAF KINASE INHIBITOR) [Suspect]
     Indication: HEPATIC NEOPLASM MALIGNANT
     Dosage: 400 MG, QD
     Dates: start: 20090323, end: 20090420
  2. RABEPRAZOLE SODIUM [Concomitant]
     Indication: GASTRITIS ATROPHIC
     Dosage: 10 MG, UNK
     Dates: start: 20090313
  3. LEVOFLOXACIN [Concomitant]
     Indication: CHOLANGITIS
     Dosage: 400 MG, UNK
     Dates: start: 20090313, end: 20090501
  4. DICLOFENAC SODIUM [Concomitant]
     Indication: PYREXIA
     Dosage: 50 MG, UNK
     Dates: start: 20090327, end: 20090415
  5. LOXOPROFEN SODIUM [Concomitant]
     Indication: TUMOUR ASSOCIATED FEVER
     Dosage: 180 MG, UNK
     Dates: start: 20090313

REACTIONS (1)
  - HEPATIC FUNCTION ABNORMAL [None]
